FAERS Safety Report 10547517 (Version 1)
Quarter: 2014Q4

REPORT INFORMATION
  Report Type: Spontaneous
  Country: FR (occurrence: FR)
  Receive Date: 20141028
  Receipt Date: 20141028
  Transmission Date: 20150529
  Serious: Yes (Hospitalization)
  Sender: FDA-Public Use
  Company Number: FR-BIOGENIDEC-2014BI111888

PATIENT
  Age: 62 Year
  Sex: Male

DRUGS (5)
  1. FAMPYRA [Suspect]
     Active Substance: DALFAMPRIDINE
     Indication: GAIT DISTURBANCE
     Route: 048
     Dates: start: 20131010, end: 20140701
  2. VESICARE [Concomitant]
     Active Substance: SOLIFENACIN SUCCINATE
  3. LYRICA [Concomitant]
     Active Substance: PREGABALIN
     Indication: NEURALGIA
     Route: 048
     Dates: start: 20111114
  4. RIVOTRIL [Concomitant]
     Active Substance: CLONAZEPAM
     Indication: MUSCLE SPASTICITY
     Route: 048
     Dates: start: 2008
  5. KARDEGIC [Concomitant]
     Active Substance: ASPIRIN LYSINE
     Indication: PROPHYLAXIS
     Route: 048
     Dates: start: 201404

REACTIONS (2)
  - Urosepsis [Recovered/Resolved]
  - Prostatitis [Recovered/Resolved]
